FAERS Safety Report 11699402 (Version 3)
Quarter: 2015Q4

REPORT INFORMATION
  Report Type: Spontaneous
  Country: FI (occurrence: FI)
  Receive Date: 20151104
  Receipt Date: 20151215
  Transmission Date: 20160304
  Serious: Yes (Other)
  Sender: FDA-Public Use
  Company Number: FI-ROCHE-1655457

PATIENT
  Sex: Male

DRUGS (8)
  1. BURANA [Concomitant]
     Active Substance: IBUPROFEN
     Route: 065
     Dates: end: 20150921
  2. XOLAIR [Suspect]
     Active Substance: OMALIZUMAB
     Route: 065
     Dates: start: 20150805, end: 2015
  3. XOLAIR [Suspect]
     Active Substance: OMALIZUMAB
     Indication: CHRONIC SPONTANEOUS URTICARIA
     Route: 065
     Dates: start: 20150323, end: 2015
  4. XOLAIR [Suspect]
     Active Substance: OMALIZUMAB
     Route: 065
     Dates: start: 20150902, end: 2015
  5. PANADOL FORTE [Concomitant]
     Active Substance: ACETAMINOPHEN\CAFFEINE
  6. SUMATRIPTAN. [Concomitant]
     Active Substance: SUMATRIPTAN
     Route: 065
  7. XOLAIR [Suspect]
     Active Substance: OMALIZUMAB
     Route: 065
     Dates: start: 20150930
  8. BURANA [Concomitant]
     Active Substance: IBUPROFEN
     Route: 065
     Dates: start: 20150922

REACTIONS (12)
  - Erythema [Recovered/Resolved]
  - Heart rate increased [Recovered/Resolved]
  - Vomiting [Recovered/Resolved]
  - Insomnia [Recovered/Resolved]
  - Abdominal pain upper [Recovered/Resolved]
  - Pyrexia [Recovered/Resolved]
  - Pruritus [Unknown]
  - Malaise [Recovered/Resolved]
  - Urticaria [Unknown]
  - Off label use [Unknown]
  - Hypotension [Recovered/Resolved]
  - Headache [Recovered/Resolved]
